FAERS Safety Report 9585787 (Version 1)
Quarter: 2013Q4

REPORT INFORMATION
  Report Type: Spontaneous
  Country: FR (occurrence: FR)
  Receive Date: 20131003
  Receipt Date: 20131003
  Transmission Date: 20140711
  Serious: Yes (Hospitalization)
  Sender: FDA-Public Use
  Company Number: FR-BRISTOL-MYERS SQUIBB COMPANY-19434208

PATIENT
  Age: 85 Year
  Sex: Female

DRUGS (5)
  1. COUMADINE [Suspect]
     Indication: ARRHYTHMIA
     Dosage: INTRPTED ON : 12MAY13, REINTRODUCED ON 23MAY13
  2. COAPROVEL [Concomitant]
  3. DETENSIEL [Concomitant]
  4. LEVOTHYROX [Concomitant]
  5. CRESTOR [Concomitant]

REACTIONS (2)
  - Gastrointestinal haemorrhage [Recovered/Resolved]
  - Erosive oesophagitis [Recovered/Resolved]
